FAERS Safety Report 9523179 (Version 1)
Quarter: 2013Q3

REPORT INFORMATION
  Report Type: Report from Study
  Country: AU (occurrence: AU)
  Receive Date: 20130913
  Receipt Date: 20130913
  Transmission Date: 20140515
  Serious: Yes (Death)
  Sender: FDA-Public Use
  Company Number: AU-GLAXOSMITHKLINE-B0910463A

PATIENT
  Age: 65 Year
  Sex: Female

DRUGS (2)
  1. TYVERB [Suspect]
     Indication: BREAST CANCER METASTATIC
     Route: 065
  2. XELODA [Concomitant]
     Route: 065

REACTIONS (2)
  - Pain in extremity [Recovering/Resolving]
  - Disease progression [Fatal]
